APPROVED DRUG PRODUCT: NAMZARIC
Active Ingredient: DONEPEZIL HYDROCHLORIDE; MEMANTINE HYDROCHLORIDE
Strength: 10MG;28MG
Dosage Form/Route: CAPSULE, EXTENDED RELEASE;ORAL
Application: N206439 | Product #002 | TE Code: AB
Applicant: ABBVIE INC
Approved: Dec 23, 2014 | RLD: Yes | RS: Yes | Type: RX

PATENTS:
Patent 8039009 | Expires: Mar 24, 2029
Patent 8058291 | Expires: Dec 5, 2029
Patent 8039009*PED | Expires: Sep 24, 2029